FAERS Safety Report 13696888 (Version 1)
Quarter: 2017Q2

REPORT INFORMATION
  Report Type: Spontaneous
  Country: US (occurrence: US)
  Receive Date: 20170627
  Receipt Date: 20170627
  Transmission Date: 20170830
  Serious: Yes (Disabling)
  Sender: FDA-Public Use
  Company Number: None

PATIENT
  Age: 27 Year
  Sex: Female
  Weight: 65.25 kg

DRUGS (6)
  1. VITAMIN B12 [Concomitant]
     Active Substance: CYANOCOBALAMIN
  2. IRON [Concomitant]
     Active Substance: IRON
  3. PROBIOTICS [Concomitant]
     Active Substance: PROBIOTICS NOS
  4. KLONOPIN [Suspect]
     Active Substance: CLONAZEPAM
     Indication: ANXIETY
     Dosage: ?          OTHER STRENGTH:MG;QUANTITY:90 TABLET(S);?
     Route: 048
     Dates: start: 20100115, end: 20150915
  5. VALIUM [Suspect]
     Active Substance: DIAZEPAM
     Indication: DRUG WITHDRAWAL MAINTENANCE THERAPY
     Dosage: OTHER STRENGTH:MG;QUANTITY:180 TABLET(S);OTHER FREQUENCY:6 X DAILY;?
     Route: 048
  6. VITAMIN D3 [Concomitant]
     Active Substance: CHOLECALCIFEROL

REACTIONS (10)
  - Vertigo [None]
  - Seizure [None]
  - Neuropathy peripheral [None]
  - Loss of consciousness [None]
  - Visual impairment [None]
  - Postural orthostatic tachycardia syndrome [None]
  - Drug use disorder [None]
  - Fatigue [None]
  - Abdominal discomfort [None]
  - Headache [None]

NARRATIVE: CASE EVENT DATE: 20100115
